FAERS Safety Report 11316542 (Version 1)
Quarter: 2015Q3

REPORT INFORMATION
  Report Type: Spontaneous
  Country: CH (occurrence: CH)
  Receive Date: 20150728
  Receipt Date: 20150728
  Transmission Date: 20151125
  Serious: Yes (Hospitalization, Other)
  Sender: FDA-Public Use
  Company Number: CH-GLAXOSMITHKLINE-CH2015105530

PATIENT
  Age: 84 Year
  Sex: Male

DRUGS (11)
  1. BELOC ZOK RETARDTABLETTEN [Concomitant]
     Route: 048
  2. PREDNISONE. [Concomitant]
     Active Substance: PREDNISONE
     Route: 048
     Dates: start: 20150603
  3. DIAMICRON MR [Concomitant]
     Active Substance: GLICLAZIDE
     Route: 048
     Dates: end: 20150528
  4. ASPIRIN CARDIO [Concomitant]
     Active Substance: ASPIRIN
     Route: 048
     Dates: end: 20150528
  5. DAFALGAN [Concomitant]
     Active Substance: ACETAMINOPHEN
     Route: 048
     Dates: start: 20150531
  6. ZINAT [Suspect]
     Active Substance: CEFUROXIME AXETIL
     Indication: UROSEPSIS
     Route: 048
     Dates: start: 20150116, end: 20150706
  7. TRADJENTA [Concomitant]
     Active Substance: LINAGLIPTIN
     Route: 048
     Dates: start: 20150313, end: 20150528
  8. NOVORAPID [Concomitant]
     Active Substance: INSULIN ASPART
     Route: 058
     Dates: start: 20150527
  9. LANTUS [Concomitant]
     Active Substance: INSULIN GLARGINE
     Route: 058
     Dates: start: 20150528
  10. AUGMENTIN [Suspect]
     Active Substance: AMOXICILLIN\CLAVULANATE POTASSIUM
     Indication: UROSEPSIS
     Route: 048
     Dates: start: 20150120, end: 20150612
  11. NEXIUM 20 MUPS-TABLETTEN [Concomitant]
     Route: 048

REACTIONS (1)
  - Pemphigoid [Recovering/Resolving]

NARRATIVE: CASE EVENT DATE: 20150223
